FAERS Safety Report 17206272 (Version 2)
Quarter: 2020Q1

REPORT INFORMATION
  Report Type: Spontaneous
  Country: CA (occurrence: CA)
  Receive Date: 20191227
  Receipt Date: 20200219
  Transmission Date: 20200409
  Serious: Yes (Other)
  Sender: FDA-Public Use
  Company Number: CA-TEVA-2019-CA-1156392

PATIENT
  Sex: Male

DRUGS (1)
  1. PREGABALIN. [Suspect]
     Active Substance: PREGABALIN
     Indication: SPINAL PAIN
     Dosage: 450 MILLIGRAM DAILY;
     Route: 065

REACTIONS (8)
  - Hyperhidrosis [Recovered/Resolved]
  - Hallucination, visual [Recovered/Resolved]
  - Pruritus [Recovered/Resolved]
  - Tremor [Recovered/Resolved]
  - Drug ineffective [Unknown]
  - Chills [Recovered/Resolved]
  - Sleep disorder [Recovered/Resolved]
  - Withdrawal syndrome [Recovered/Resolved]
